FAERS Safety Report 26118331 (Version 1)
Quarter: 2025Q4

REPORT INFORMATION
  Report Type: Spontaneous
  Country: IN (occurrence: IN)
  Receive Date: 20251203
  Receipt Date: 20251203
  Transmission Date: 20260117
  Serious: Yes (Other)
  Sender: PFIZER
  Company Number: IN-PFIZER INC-PV202500139358

PATIENT

DRUGS (2)
  1. LORLATINIB [Suspect]
     Active Substance: LORLATINIB
     Indication: Lung adenocarcinoma stage IV
     Dosage: 100 MG, 1X/DAY
     Route: 048
     Dates: start: 20250720
  2. DENOSUMAB [Suspect]
     Active Substance: DENOSUMAB
     Dosage: 120 MG

REACTIONS (9)
  - Neuropathy peripheral [Unknown]
  - Vena cava thrombosis [Unknown]
  - Electrocardiogram QT prolonged [Unknown]
  - Blood thyroid stimulating hormone increased [Unknown]
  - Dyslipidaemia [Unknown]
  - Myalgia [Unknown]
  - Eastern Cooperative Oncology Group performance status abnormal [Unknown]
  - Blood cholesterol increased [Unknown]
  - Echocardiogram abnormal [Unknown]
